FAERS Safety Report 4958872-8 (Version None)
Quarter: 2006Q1

REPORT INFORMATION
  Report Type: 
  Country: None (occurrence: None)
  Receive Date: 20060331
  Receipt Date: 20060322
  Transmission Date: 20060701
  Serious: Yes (Other)
  Sender: FDA-Public Use
  Company Number: CA-BOEHRINGER INGELHEIM PHARMACEUTICALS, INC.-2006-CN-00169CN

PATIENT
  Age: 59 Year
  Sex: Male

DRUGS (1)
  1. SPIRIVA [Suspect]
     Indication: CHRONIC OBSTRUCTIVE PULMONARY DISEASE
     Dates: end: 20051201

REACTIONS (4)
  - DEAFNESS UNILATERAL [None]
  - EAR INFECTION [None]
  - HYPOACUSIS [None]
  - SINUSITIS [None]
